FAERS Safety Report 4633428-5 (Version None)
Quarter: 2005Q2

REPORT INFORMATION
  Report Type: 
  Country: None (occurrence: None)
  Receive Date: 20050408
  Receipt Date: 20050329
  Transmission Date: 20051028
  Serious: Yes (Other)
  Sender: FDA-Public Use
  Company Number: 2005008465

PATIENT
  Sex: Female

DRUGS (2)
  1. CELEBREX [Suspect]
     Indication: ARTHRITIS
     Dosage: 400 MG (200 MG, 2 IN 1 D)
     Dates: start: 20041005
  2. ROFECOXIB [Suspect]
     Indication: ILL-DEFINED DISORDER
     Dates: end: 20041101

REACTIONS (3)
  - ARTHRALGIA [None]
  - KNEE OPERATION [None]
  - PAIN IN EXTREMITY [None]
